FAERS Safety Report 14929344 (Version 1)
Quarter: 2018Q2

REPORT INFORMATION
  Report Type: Spontaneous
  Country: CA (occurrence: CA)
  Receive Date: 20180523
  Receipt Date: 20180523
  Transmission Date: 20180711
  Serious: Yes (Hospitalization, Other)
  Sender: FDA-Public Use
  Company Number: CA-CELGENEUS-CAN-20180505132

PATIENT
  Age: 68 Year
  Sex: Female

DRUGS (4)
  1. MEDI4736 (DURVALUMAB) [Suspect]
     Active Substance: DURVALUMAB
     Indication: PANCREATIC CARCINOMA
     Dosage: 1500 MILLIGRAM
     Route: 041
     Dates: start: 20171204, end: 20180307
  2. ABRAXANE [Suspect]
     Active Substance: PACLITAXEL
     Indication: PANCREATIC CARCINOMA
     Dosage: 160 MILLIGRAM
     Route: 041
     Dates: start: 20171204, end: 20180321
  3. TREMELIMUMAB. [Concomitant]
     Active Substance: TREMELIMUMAB
     Indication: PANCREATIC CARCINOMA
     Dosage: 75 MILLIGRAM
     Route: 041
     Dates: start: 20171204, end: 20180307
  4. GEMCITABINE [Concomitant]
     Active Substance: GEMCITABINE\GEMCITABINE HYDROCHLORIDE
     Indication: PANCREATIC CARCINOMA
     Dosage: 1292 MILLIGRAM
     Route: 041
     Dates: start: 20171204, end: 20180321

REACTIONS (3)
  - Obstruction gastric [Not Recovered/Not Resolved]
  - Hypotension [Not Recovered/Not Resolved]
  - Pancreatic duct stenosis [Not Recovered/Not Resolved]

NARRATIVE: CASE EVENT DATE: 20180507
